FAERS Safety Report 4435863-7 (Version None)
Quarter: 2004Q3

REPORT INFORMATION
  Report Type: 
  Country: None (occurrence: None)
  Receive Date: 20040726
  Receipt Date: 20040301
  Transmission Date: 20050211
  Serious: No
  Sender: FDA-Public Use
  Company Number: USA040360655

PATIENT
  Age: 76 Year
  Sex: Female

DRUGS (10)
  1. FORTEO [Suspect]
     Dates: start: 20040101
  2. FLEXERIL [Concomitant]
  3. QUININE [Concomitant]
  4. LIPITOR [Concomitant]
  5. ZOFRAN [Concomitant]
  6. ALTACE [Concomitant]
  7. NADOLOL [Concomitant]
  8. HYDROCHLOROTHIAZIDE [Concomitant]
  9. NEXIUM [Concomitant]
  10. ZANTAC [Concomitant]

REACTIONS (7)
  - DIFFICULTY IN WALKING [None]
  - HYPOTENSION [None]
  - MUSCLE CRAMP [None]
  - MUSCLE TIGHTNESS [None]
  - MUSCULOSKELETAL STIFFNESS [None]
  - PAIN IN EXTREMITY [None]
  - RHINORRHOEA [None]
